FAERS Safety Report 9187493 (Version 1)
Quarter: 2013Q1

REPORT INFORMATION
  Report Type: Spontaneous
  Country: US (occurrence: US)
  Receive Date: 20130325
  Receipt Date: 20130325
  Transmission Date: 20140127
  Serious: No
  Sender: FDA-Public Use
  Company Number: US-JNJFOC-20130209078

PATIENT
  Age: 18 Year
  Sex: Female
  Weight: 79.38 kg

DRUGS (4)
  1. INVEGA [Suspect]
     Indication: BIPOLAR DISORDER
     Route: 048
     Dates: start: 2013, end: 20130212
  2. LITHIUM [Concomitant]
     Route: 065
  3. LAMICTAL [Concomitant]
     Route: 065
  4. TRAZODONE [Concomitant]
     Route: 065

REACTIONS (1)
  - Galactorrhoea [Unknown]
